FAERS Safety Report 12443021 (Version 1)
Quarter: 2016Q2

REPORT INFORMATION
  Report Type: Spontaneous
  Country: US (occurrence: None)
  Receive Date: 20160606
  Receipt Date: 20160606
  Transmission Date: 20160815
  Serious: Yes (Life-Threatening, Hospitalization, Disabling)
  Sender: FDA-Public Use
  Company Number: None

PATIENT
  Age: 41 Year
  Sex: Female
  Weight: 62.14 kg

DRUGS (9)
  1. PHENTERMINE. [Concomitant]
     Active Substance: PHENTERMINE
  2. VITAMIN B COMPLEX [Concomitant]
     Active Substance: CYANOCOBALAMIN\DEXPANTHENOL\NIACINAMIDE\PYRIDOXINE HYDROCHLORIDE\RIBOFLAVIN 5^-PHOSPHATE SODIUM\THIAMINE HYDROCHLORIDE\VITAMIN B COMPLEX
  3. VIACTIVE (VITAMIN D + CALCIUM) [Concomitant]
  4. METAMUCIL [Concomitant]
     Active Substance: PLANTAGO SEED
  5. VITAMIN B12 [Concomitant]
     Active Substance: CYANOCOBALAMIN
  6. LUPRON DEPOT [Suspect]
     Active Substance: LEUPROLIDE ACETATE
     Indication: ENDOMETRIOSIS
     Dosage: INJEC 1/MO FOR 6MO INTO THE MUSCLE
     Route: 030
  7. ASPIRIN. [Concomitant]
     Active Substance: ASPIRIN
  8. VICODIN [Concomitant]
     Active Substance: ACETAMINOPHEN\HYDROCODONE BITARTRATE
  9. TYLENOL [Concomitant]
     Active Substance: ACETAMINOPHEN

REACTIONS (29)
  - Memory impairment [None]
  - Night sweats [None]
  - Petechiae [None]
  - Vitamin B12 deficiency [None]
  - Pain in extremity [None]
  - Movement disorder [None]
  - Fatigue [None]
  - Vision blurred [None]
  - Gastritis [None]
  - Micturition urgency [None]
  - Vocal cord inflammation [None]
  - Impaired work ability [None]
  - Weight increased [None]
  - Diarrhoea [None]
  - Pruritus [None]
  - Paraesthesia [None]
  - Headache [None]
  - Oesophagitis [None]
  - Cough [None]
  - Dyspnoea [None]
  - Pain in jaw [None]
  - Alopecia [None]
  - Photophobia [None]
  - Interstitial lung disease [None]
  - Haemorrhage [None]
  - Bone pain [None]
  - Toothache [None]
  - Raynaud^s phenomenon [None]
  - Vitamin D deficiency [None]

NARRATIVE: CASE EVENT DATE: 20160601
